FAERS Safety Report 9029264 (Version 2)
Quarter: 2013Q2

REPORT INFORMATION
  Report Type: Spontaneous
  Country: US (occurrence: US)
  Receive Date: 20130125
  Receipt Date: 20130507
  Transmission Date: 20140414
  Serious: Yes (Other)
  Sender: FDA-Public Use
  Company Number: US-BAYER-2013-010182

PATIENT
  Age: 23 Year
  Sex: Female
  Weight: 75 kg

DRUGS (3)
  1. MIRENA [Suspect]
     Indication: CONTRACEPTION
     Dosage: 20 MCG/24HR, CONT
     Route: 015
     Dates: start: 20130122, end: 20130122
  2. MIRENA [Suspect]
     Indication: CONTRACEPTION
     Dosage: 20 MCG/24HR, CONT
     Route: 015
  3. MOTRIM [Concomitant]

REACTIONS (2)
  - Uterine perforation [Recovered/Resolved]
  - Device difficult to use [Recovered/Resolved]
